FAERS Safety Report 16630111 (Version 1)
Quarter: 2019Q3

REPORT INFORMATION
  Report Type: Spontaneous
  Country: CN (occurrence: CN)
  Receive Date: 20190725
  Receipt Date: 20190725
  Transmission Date: 20191004
  Serious: Yes (Hospitalization)
  Sender: FDA-Public Use
  Company Number: CN-BAXTER-2019BAX014399

PATIENT
  Age: 53 Year
  Sex: Female
  Weight: 65 kg

DRUGS (10)
  1. EPIRUBICIN HYDROCHLORIDE. [Suspect]
     Active Substance: EPIRUBICIN HYDROCHLORIDE
     Dosage: EPIRUBICIN 65 MG + WATER FOR INJECTION 40 ML
     Route: 042
     Dates: start: 20190405, end: 20190405
  2. ENDOXAN [Suspect]
     Active Substance: CYCLOPHOSPHAMIDE
     Indication: BREAST CANCER
     Dosage: ENDOXAN + NS
     Route: 042
     Dates: start: 20190406, end: 20190406
  3. ENDOXAN [Suspect]
     Active Substance: CYCLOPHOSPHAMIDE
     Dosage: DOSE RE-INTRODUCED ENDOXAN + NS
     Route: 042
  4. STERILE WATER FOR INJECTION [Suspect]
     Active Substance: WATER
     Indication: MEDICATION DILUTION
     Dosage: EPIRUBICIN 60 MG + WATER FOR INJECTION 40 ML
     Route: 042
     Dates: start: 20190404, end: 20190404
  5. STERILE WATER FOR INJECTION [Suspect]
     Active Substance: WATER
     Dosage: EPIRUBICIN 65 MG + WATER FOR INJECTION 40 ML
     Route: 042
     Dates: start: 20190405, end: 20190405
  6. STERILE WATER FOR INJECTION [Suspect]
     Active Substance: WATER
     Dosage: DOSE RE-INTRODUCED EPIRUBICIN + WATER FOR INJECTION
     Route: 042
  7. EPIRUBICIN HYDROCHLORIDE. [Suspect]
     Active Substance: EPIRUBICIN HYDROCHLORIDE
     Dosage: DOSE RE-INTRODUCED EPIRUBICIN + WATER FOR INJECTION
     Route: 042
  8. 0.9% SODIUM CHLORIDE INJECTION [Suspect]
     Active Substance: SODIUM CHLORIDE
     Dosage: DOSE RE-INTRODUCED ENDOXAN + NS
     Route: 042
  9. EPIRUBICIN HYDROCHLORIDE. [Suspect]
     Active Substance: EPIRUBICIN HYDROCHLORIDE
     Indication: BREAST CANCER
     Dosage: EPIRUBICIN 60 MG + WATER FOR INJECTION 40 ML
     Route: 042
     Dates: start: 20190404, end: 20190404
  10. 0.9% SODIUM CHLORIDE INJECTION [Suspect]
     Active Substance: SODIUM CHLORIDE
     Indication: MEDICATION DILUTION
     Dosage: ENDOXAN + NS
     Route: 042
     Dates: start: 20190406, end: 20190406

REACTIONS (1)
  - Bone marrow failure [Recovered/Resolved]

NARRATIVE: CASE EVENT DATE: 20190411
